FAERS Safety Report 7745130-1 (Version None)
Quarter: 2011Q3

REPORT INFORMATION
  Report Type: 
  Country: None (occurrence: None)
  Receive Date: 20110913
  Receipt Date: 20080722
  Transmission Date: 20111222
  Serious: No
  Sender: FDA-Public Use
  Company Number: 2008BI012622

PATIENT
  Age: 38 Year
  Sex: Female

DRUGS (5)
  1. CYMBALTA [Concomitant]
     Dates: start: 20040101
  2. TOPAMAX [Concomitant]
     Dates: start: 20070101
  3. DEXEDRINE [Concomitant]
     Dates: start: 20050101
  4. TYSABRI [Suspect]
     Route: 042
     Dates: start: 20090626
  5. TYSABRI [Suspect]
     Indication: MULTIPLE SCLEROSIS
     Route: 042
     Dates: start: 20070901, end: 20081124

REACTIONS (2)
  - DEPRESSION [None]
  - FATIGUE [None]
